FAERS Safety Report 9743103 (Version 1)
Quarter: 2013Q4

REPORT INFORMATION
  Report Type: Spontaneous
  Country: US (occurrence: US)
  Receive Date: 20131210
  Receipt Date: 20131210
  Transmission Date: 20140711
  Serious: Yes (Other)
  Sender: FDA-Public Use
  Company Number: US-TEVA-378906USA

PATIENT
  Age: 26 Year
  Sex: Female
  Weight: 84.9 kg

DRUGS (2)
  1. PARAGARD 380A [Suspect]
     Indication: CONTRACEPTION
     Route: 015
     Dates: start: 20121227, end: 20121227
  2. ANAPROX [Concomitant]
     Indication: PAIN
     Route: 048
     Dates: start: 20121010

REACTIONS (1)
  - Medical device complication [Recovered/Resolved]
